FAERS Safety Report 8445914-0 (Version None)
Quarter: 2012Q2

REPORT INFORMATION
  Report Type: 
  Country: None (occurrence: None)
  Receive Date: 20120618
  Receipt Date: 20120613
  Transmission Date: 20120825
  Serious: Yes (Death, Hospitalization, Other)
  Sender: FDA-Public Use
  Company Number: RO-ABBOTT-12P-135-0925751-00

PATIENT
  Sex: Female
  Weight: 78 kg

DRUGS (7)
  1. METHYLPREDNISOLONE [Concomitant]
     Indication: ANTINEUTROPHIL CYTOPLASMIC ANTIBODY POSITIVE
  2. INDAPAMID [Concomitant]
     Indication: HYPERTENSION
     Route: 048
     Dates: start: 20090601
  3. NEBIVOLOL [Concomitant]
     Indication: HYPERTENSION
     Route: 048
     Dates: start: 20100101
  4. ZEMPLAR [Suspect]
     Indication: HYPERPARATHYROIDISM SECONDARY
     Route: 048
     Dates: start: 20110511, end: 20120307
  5. ZEMPLAR [Suspect]
     Dates: start: 20120229, end: 20120307
  6. METHYLPREDNISOLONE [Concomitant]
     Indication: VASCULITIS
     Route: 048
     Dates: start: 20080601
  7. L TYROXIN [Concomitant]
     Indication: HYPOTHYROIDISM
     Route: 048
     Dates: start: 20090101

REACTIONS (8)
  - RENAL FAILURE CHRONIC [None]
  - ACUTE MYOCARDIAL INFARCTION [None]
  - INTERSTITIAL LUNG DISEASE [None]
  - CARDIOGENIC SHOCK [None]
  - GLOMERULONEPHRITIS [None]
  - CARDIAC ARREST [None]
  - ANTI-NEUTROPHIL CYTOPLASMIC ANTIBODY POSITIVE VASCULITIS [None]
  - HYPERTENSION [None]
